FAERS Safety Report 17291598 (Version 1)
Quarter: 2020Q1

REPORT INFORMATION
  Report Type: Spontaneous
  Country: US (occurrence: US)
  Receive Date: 20200121
  Receipt Date: 20200121
  Transmission Date: 20200409
  Serious: Yes (Hospitalization, Disabling, Other)
  Sender: FDA-Public Use
  Company Number: US-BAYER-2019-237308

PATIENT
  Sex: Male

DRUGS (1)
  1. GADOPENTETATE DIMEGLUMINE. [Suspect]
     Active Substance: GADOPENTETATE DIMEGLUMINE
     Indication: MAGNETIC RESONANCE IMAGING
     Dosage: UNK
     Route: 042
     Dates: start: 20090612, end: 20090612

REACTIONS (45)
  - Paraesthesia [None]
  - Osteoarthritis [None]
  - Neuro-ophthalmological test abnormal [None]
  - Joint injury [None]
  - Carpal tunnel syndrome [None]
  - Renal failure [None]
  - Cranial nerve injury [None]
  - Vestibular disorder [None]
  - Oral disorder [None]
  - Radiculopathy [None]
  - Intervertebral disc protrusion [None]
  - Perineurial cyst [None]
  - Nephrogenic systemic fibrosis [None]
  - Pain [None]
  - Hypoaesthesia [None]
  - Cognitive disorder [None]
  - Occipital neuralgia [None]
  - Vocal cord atrophy [None]
  - Tooth disorder [None]
  - Face injury [None]
  - Arachnoiditis [None]
  - Delirium [None]
  - Tinnitus [None]
  - Limb injury [None]
  - Malaise [None]
  - Restless legs syndrome [None]
  - Trigeminal neuralgia [None]
  - Spinal cord compression [None]
  - Arachnoid web [None]
  - Sacroiliitis [None]
  - Arthralgia [None]
  - Varicocele [None]
  - Contrast media toxicity [None]
  - Amnesia [None]
  - Cerebral atrophy [None]
  - Vocal cord scarring [None]
  - Tendon calcification [None]
  - Anxiety [None]
  - Emotional distress [None]
  - Fatigue [None]
  - Deafness [None]
  - Intervertebral disc degeneration [None]
  - Osteoporosis [None]
  - Bone pain [None]
  - Ankylosing spondylitis [None]
